FAERS Safety Report 9861398 (Version 1)
Quarter: 2014Q1

REPORT INFORMATION
  Report Type: Spontaneous
  Country: US (occurrence: None)
  Receive Date: 20140131
  Receipt Date: 20140131
  Transmission Date: 20141002
  Serious: Yes (Other)
  Sender: FDA-Public Use
  Company Number: None

PATIENT
  Age: 64 Year
  Sex: Female
  Weight: 49.9 kg

DRUGS (6)
  1. DILTIAZAM CD [Suspect]
     Indication: SUPRAVENTRICULAR TACHYCARDIA
     Route: 048
     Dates: start: 20131102
  2. SHAKLEE OSTEOMATRIX [Suspect]
     Indication: OSTEOPENIA
     Route: 048
     Dates: start: 20131221, end: 20131221
  3. DILTIAZAM CD [Concomitant]
  4. MEDIZINE [Concomitant]
  5. TYLENOL [Concomitant]
  6. ASPIRIN [Concomitant]

REACTIONS (4)
  - Vertigo [None]
  - Blood pressure increased [None]
  - Heart rate increased [None]
  - Drug interaction [None]
